FAERS Safety Report 10234612 (Version 1)
Quarter: 2014Q2

REPORT INFORMATION
  Report Type: Spontaneous
  Country: US (occurrence: US)
  Receive Date: 20140613
  Receipt Date: 20140613
  Transmission Date: 20141212
  Serious: No
  Sender: FDA-Public Use
  Company Number: US-009507513-1406USA004087

PATIENT
  Age: 50 Year
  Sex: Female
  Weight: 82.86 kg

DRUGS (2)
  1. JANUVIA [Suspect]
     Indication: TYPE 2 DIABETES MELLITUS
     Dosage: 100 MG, QD
     Route: 048
     Dates: start: 201405
  2. LANTUS [Concomitant]

REACTIONS (1)
  - Headache [Not Recovered/Not Resolved]
